FAERS Safety Report 4420974-2 (Version None)
Quarter: 2004Q2

REPORT INFORMATION
  Report Type: 
  Country: None (occurrence: None)
  Receive Date: 20040621
  Receipt Date: 20040323
  Transmission Date: 20050107
  Serious: Yes (Hospitalization)
  Sender: FDA-Public Use
  Company Number: A-US2003-02109

PATIENT
  Age: 59 Year
  Sex: Female

DRUGS (10)
  1. TRACLEER [Suspect]
     Indication: PULMONARY HYPERTENSION
     Dosage: 62.5 MG, BID,; 125 MG, BID
     Dates: start: 20020101, end: 20020206
  2. TRACLEER [Suspect]
     Indication: PULMONARY HYPERTENSION
     Dosage: 62.5 MG, BID,; 125 MG, BID
     Dates: start: 20020206, end: 20030214
  3. TRACLEER [Suspect]
     Indication: PULMONARY HYPERTENSION
     Dosage: 62.5 MG, BID,; 125 MG, BID
     Dates: start: 20030214
  4. BUMEX [Concomitant]
  5. K-DUR 10 [Concomitant]
  6. DIGOXIN [Concomitant]
  7. INSULIN [Concomitant]
  8. PREMARIN [Concomitant]
  9. NTG (GLYCERYL TRINITRATE) [Concomitant]
  10. AMBIEN [Concomitant]

REACTIONS (3)
  - CONDITION AGGRAVATED [None]
  - DYSPNOEA EXACERBATED [None]
  - PULMONARY HYPERTENSION [None]
